FAERS Safety Report 7411084-0 (Version None)
Quarter: 2011Q2

REPORT INFORMATION
  Report Type: 
  Country: None (occurrence: None)
  Receive Date: 20110413
  Receipt Date: 20110401
  Transmission Date: 20111010
  Serious: Yes (Hospitalization)
  Sender: FDA-Public Use
  Company Number: US-JNJFOC-20110400954

PATIENT
  Sex: Male
  Weight: 78.02 kg

DRUGS (9)
  1. XOPENEX [Concomitant]
     Indication: CHRONIC OBSTRUCTIVE PULMONARY DISEASE
     Dosage: 2 PUFFS EVERY 4 HOURS
  2. LYRICA [Concomitant]
     Indication: RHEUMATOID ARTHRITIS
     Route: 048
  3. OXYCODONE [Concomitant]
     Indication: PAIN
     Dosage: 30MG EVERY 6 HOURS AS NEEDED
     Route: 048
  4. FOLIC ACID [Concomitant]
     Indication: RHEUMATOID ARTHRITIS
     Route: 048
  5. REMICADE [Suspect]
     Indication: RHEUMATOID ARTHRITIS
     Dosage: DELAY OF NEXT INFUSION
     Route: 042
  6. FLOMAX [Concomitant]
     Indication: PROSTATIC DISORDER
     Route: 048
  7. NORVASC [Concomitant]
     Indication: BLOOD PRESSURE
     Route: 048
  8. METHOTREXATE [Concomitant]
     Indication: RHEUMATOID ARTHRITIS
     Dosage: 4CC WEEKLY, SUBCUTANEOUSLY
     Route: 058
  9. ZANTAC [Concomitant]
     Indication: GASTRIC DISORDER
     Route: 048

REACTIONS (1)
  - NEPHROLITHIASIS [None]
